FAERS Safety Report 20967936 (Version 1)
Quarter: 2022Q2

REPORT INFORMATION
  Report Type: Report from Study
  Country: HU (occurrence: HU)
  Receive Date: 20220616
  Receipt Date: 20220616
  Transmission Date: 20220721
  Serious: Yes (Other)
  Sender: FDA-Public Use
  Company Number: HU-NOVARTISPH-NVSC2020HU252507

PATIENT
  Age: 62 Year
  Sex: Male

DRUGS (8)
  1. COSENTYX [Suspect]
     Active Substance: SECUKINUMAB
     Indication: Psoriasis
     Dosage: 300 MG, UNKNOWN
     Route: 065
     Dates: start: 20150817, end: 20150914
  2. COSENTYX [Suspect]
     Active Substance: SECUKINUMAB
     Dosage: 300 MG, UNKNOWN
     Route: 065
     Dates: start: 20150914, end: 20160815
  3. COSENTYX [Suspect]
     Active Substance: SECUKINUMAB
     Dosage: 0 MG
     Route: 065
     Dates: start: 20160816, end: 20170205
  4. COSENTYX [Suspect]
     Active Substance: SECUKINUMAB
     Dosage: 300 MG, UNKNOWN
     Route: 065
     Dates: start: 20170205, end: 20190725
  5. COSENTYX [Suspect]
     Active Substance: SECUKINUMAB
     Dosage: 0 MG, UNKNOWN
     Route: 065
     Dates: start: 20190725, end: 20200506
  6. COSENTYX [Suspect]
     Active Substance: SECUKINUMAB
     Dosage: 300 MG (2 ML), UNKNOWN
     Route: 065
     Dates: start: 20200506, end: 20201104
  7. COSENTYX [Suspect]
     Active Substance: SECUKINUMAB
     Dosage: 0 MG
     Route: 065
     Dates: start: 20201105, end: 20210520
  8. COSENTYX [Suspect]
     Active Substance: SECUKINUMAB
     Dosage: 0 MG
     Route: 065
     Dates: start: 20210521, end: 20210528

REACTIONS (3)
  - Pyoderma [Recovered/Resolved]
  - Prostatitis [Recovered/Resolved]
  - Urinary tract infection [Recovered/Resolved]

NARRATIVE: CASE EVENT DATE: 20190213
